FAERS Safety Report 7273260-X (Version None)
Quarter: 2011Q1

REPORT INFORMATION
  Report Type: 
  Country: None (occurrence: None)
  Receive Date: 20110203
  Receipt Date: 20101108
  Transmission Date: 20110831
  Serious: No
  Sender: FDA-Public Use
  Company Number: US-ABBOTT-10P-163-0684200-00

PATIENT

DRUGS (2)
  1. SYNTHROID [Suspect]
     Indication: THYROIDECTOMY
  2. METHADON HCL TAB [Interacting]
     Indication: PRODUCT USED FOR UNKNOWN INDICATION

REACTIONS (2)
  - UNEVALUABLE EVENT [None]
  - DRUG INTERACTION [None]
